FAERS Safety Report 4514475-0 (Version None)
Quarter: 2004Q4

REPORT INFORMATION
  Report Type: 
  Country: None (occurrence: None)
  Receive Date: 20040928
  Receipt Date: 20040716
  Transmission Date: 20050328
  Serious: No
  Sender: FDA-Public Use
  Company Number: 04P-163-0267330-00

PATIENT
  Age: 67 Year
  Sex: Female
  Weight: 68.0396 kg

DRUGS (9)
  1. HUMIRA [Suspect]
     Indication: RHEUMATOID ARTHRITIS
     Dosage: 40 MG, 1 IN 2 WK, SUBCUTANEOUS
     Route: 058
     Dates: start: 20040619
  2. PAROXETINE HYDROCHLORIDE [Concomitant]
  3. FERROUS SULFATE TAB [Concomitant]
  4. LISINOPRIL [Concomitant]
  5. STOMACH PILL [Concomitant]
  6. PROPACET 100 [Concomitant]
  7. ALENDRONATE SODIUM [Concomitant]
  8. IRON [Concomitant]
  9. CALCIUM [Concomitant]

REACTIONS (1)
  - BRONCHITIS [None]
